FAERS Safety Report 7329605-5 (Version None)
Quarter: 2011Q1

REPORT INFORMATION
  Report Type: 
  Country: None (occurrence: None)
  Receive Date: 20110222
  Receipt Date: 20110215
  Transmission Date: 20110831
  Serious: Yes (Other)
  Sender: FDA-Public Use
  Company Number: 2011SP007211

PATIENT
  Age: 62 Year
  Sex: Female
  Weight: 77.1115 kg

DRUGS (8)
  1. DULAUDID [Concomitant]
  2. ADALAT CC [Concomitant]
  3. ACCUPRIL [Concomitant]
  4. DOCUSATE [Concomitant]
  5. SENNOSIDES [Concomitant]
  6. FUROSEMIDE [Concomitant]
  7. NOVORAPID [Concomitant]
  8. REMERON [Suspect]
     Indication: PRODUCT USED FOR UNKNOWN INDICATION
     Dosage: 15 MG; QD;

REACTIONS (5)
  - ABDOMINAL PAIN UPPER [None]
  - RECTAL HAEMORRHAGE [None]
  - HYPERGLYCAEMIA [None]
  - HEPATIC PAIN [None]
  - CONSTIPATION [None]
